FAERS Safety Report 18558540 (Version 1)
Quarter: 2020Q4

REPORT INFORMATION
  Report Type: Report from Study
  Country: US (occurrence: US)
  Receive Date: 20201130
  Receipt Date: 20201130
  Transmission Date: 20210114
  Serious: Yes (Hospitalization, Other)
  Sender: FDA-Public Use
  Company Number: NVSC2020US315510

PATIENT
  Age: 64 Year
  Sex: Female
  Weight: 72.64 kg

DRUGS (3)
  1. HYDROCORTISONE. [Suspect]
     Active Substance: HYDROCORTISONE
     Indication: ADDISON^S DISEASE
     Dosage: UNK
     Route: 065
     Dates: start: 2007
  2. XOLAIR [Suspect]
     Active Substance: OMALIZUMAB
     Indication: ASTHMA
     Dosage: 150 MG, QMO (ONE INJECTION PER DOSE)
     Route: 058
     Dates: start: 200507
  3. XOLAIR [Suspect]
     Active Substance: OMALIZUMAB
     Indication: RHINITIS ALLERGIC

REACTIONS (12)
  - Type 2 diabetes mellitus [Not Recovered/Not Resolved]
  - Hip fracture [Recovered/Resolved]
  - Sleep apnoea syndrome [Not Recovered/Not Resolved]
  - Chronic obstructive pulmonary disease [Not Recovered/Not Resolved]
  - Haemoglobin decreased [Recovered/Resolved]
  - Addison^s disease [Not Recovered/Not Resolved]
  - Fall [Unknown]
  - Skin atrophy [Not Recovered/Not Resolved]
  - Joint destruction [Recovered/Resolved]
  - Pain [Not Recovered/Not Resolved]
  - Infection [Recovered/Resolved]
  - Pneumonia [Recovered/Resolved]

NARRATIVE: CASE EVENT DATE: 2005
